FAERS Safety Report 11513749 (Version 1)
Quarter: 2015Q3

REPORT INFORMATION
  Report Type: Spontaneous
  Country: FR (occurrence: FR)
  Receive Date: 20150916
  Receipt Date: 20150916
  Transmission Date: 20151125
  Serious: Yes (Hospitalization)
  Sender: FDA-Public Use
  Company Number: FR-SA-2015SA139774

PATIENT
  Age: 66 Year
  Sex: Female

DRUGS (11)
  1. TAHOR [Suspect]
     Active Substance: ATORVASTATIN CALCIUM
     Route: 048
  2. NOVONORM [Suspect]
     Active Substance: REPAGLINIDE
     Route: 048
  3. SOLUPRED [Suspect]
     Active Substance: PREDNISOLONE
     Route: 048
  4. ZELITREX [Suspect]
     Active Substance: VALACYCLOVIR HYDROCHLORIDE
     Route: 048
  5. HEMIGOXINE NATIVELLE [Suspect]
     Active Substance: DIGOXIN
     Dosage: ROUTE- ORP
  6. AMIODARONE [Concomitant]
     Active Substance: AMIODARONE
  7. MONO-TILDIEM [Suspect]
     Active Substance: DILTIAZEM HYDROCHLORIDE
     Route: 048
  8. CELLCEPT [Suspect]
     Active Substance: MYCOPHENOLATE MOFETIL\MYCOPHENOLATE MOFETIL HYDROCHLORIDE
     Route: 048
  9. COUMADINE [Suspect]
     Active Substance: WARFARIN SODIUM
     Route: 048
  10. CERTICAN [Suspect]
     Active Substance: EVEROLIMUS
     Route: 048
     Dates: start: 201407
  11. APROVEL [Suspect]
     Active Substance: IRBESARTAN
     Route: 048

REACTIONS (2)
  - Interstitial lung disease [Not Recovered/Not Resolved]
  - Cough [Not Recovered/Not Resolved]

NARRATIVE: CASE EVENT DATE: 2015
